FAERS Safety Report 21532140 (Version 2)
Quarter: 2022Q4

REPORT INFORMATION
  Report Type: Report from Study
  Country: CA (occurrence: CA)
  Receive Date: 20221101
  Receipt Date: 20221230
  Transmission Date: 20230113
  Serious: Yes (Hospitalization, Other)
  Sender: FDA-Public Use
  Company Number: CA-ABBVIE-4180372

PATIENT
  Age: 28 Year
  Sex: Male

DRUGS (1)
  1. HUMIRA [Suspect]
     Active Substance: ADALIMUMAB
     Indication: Crohn^s disease
     Route: 058
     Dates: start: 20150509

REACTIONS (4)
  - Intestinal obstruction [Unknown]
  - Gastrointestinal scarring [Unknown]
  - Small intestinal obstruction [Unknown]
  - Dermatitis [Unknown]

NARRATIVE: CASE EVENT DATE: 20221101
